FAERS Safety Report 9714814 (Version 1)
Quarter: 2013Q4

REPORT INFORMATION
  Report Type: Spontaneous
  Country: US (occurrence: US)
  Receive Date: 20131126
  Receipt Date: 20131126
  Transmission Date: 20140711
  Serious: Yes (Hospitalization, Other)
  Sender: FDA-Public Use
  Company Number: US-B.I. PHARMACEUTICALS,INC./RIDGEFIELD-2013-BI-38786BP

PATIENT
  Age: 79 Year
  Sex: Male
  Weight: 104 kg

DRUGS (13)
  1. SPIRIVA [Suspect]
     Indication: CHRONIC OBSTRUCTIVE PULMONARY DISEASE
     Dosage: 18 MCG
     Route: 055
     Dates: start: 2004
  2. HUMULOG INSULIN [Concomitant]
     Indication: DIABETES MELLITUS
     Dosage: FORMULATION: SUBCUTANEOUS
     Route: 058
  3. LANTUS INSULIN [Concomitant]
     Indication: DIABETES MELLITUS
     Dosage: FORMULATION: SUBCUTANEOUS
     Route: 058
  4. AGGRENOX [Concomitant]
     Indication: CEREBROVASCULAR ACCIDENT
     Dosage: DOSE PER APPLICATION: 200/25 MG; DAILY DOSE: 400/ 50 MG
     Route: 048
  5. FUROSEMIDE [Concomitant]
     Indication: CARDIAC FAILURE CONGESTIVE
     Dosage: 160 MG
     Route: 048
  6. LORAZEPAM [Concomitant]
     Indication: ANXIETY
     Dosage: 2 MG
     Route: 048
  7. GEMFIBROZIL [Concomitant]
     Indication: BLOOD CHOLESTEROL INCREASED
     Route: 048
  8. PRIMIDONE [Concomitant]
     Indication: TREMOR
     Route: 048
  9. ZYRTEC [Concomitant]
     Dosage: 10 MG
     Route: 048
  10. PAROXETINE [Concomitant]
     Indication: DEPRESSION
     Route: 048
  11. ARICEPT [Concomitant]
     Indication: DEMENTIA
     Route: 048
  12. KLORCON [Concomitant]
     Route: 048
  13. ATORVASTATIN [Concomitant]
     Indication: BLOOD CHOLESTEROL INCREASED
     Route: 048

REACTIONS (3)
  - Cardiac failure congestive [Recovered/Resolved]
  - Renal disorder [Recovered/Resolved]
  - Dementia [Not Recovered/Not Resolved]
